FAERS Safety Report 8722427 (Version 4)
Quarter: 2013Q2

REPORT INFORMATION
  Report Type: Spontaneous
  Country: US (occurrence: US)
  Receive Date: 20120814
  Receipt Date: 20130409
  Transmission Date: 20140414
  Serious: Yes (Other)
  Sender: FDA-Public Use
  Company Number: US-PFIZER INC-2012196235

PATIENT
  Age: 53 Year
  Sex: Female
  Weight: 63.49 kg

DRUGS (3)
  1. LYRICA [Suspect]
     Indication: FIBROMYALGIA
     Dosage: 75 MG, 3X/DAY
     Route: 048
  2. VITAMIN D [Concomitant]
     Indication: BONE DISORDER
     Dosage: UNK
  3. ACIDOPHILUS [Concomitant]
     Indication: GASTROOESOPHAGEAL REFLUX DISEASE
     Dosage: UNK

REACTIONS (10)
  - Hypoacusis [Unknown]
  - Thyroid disorder [Unknown]
  - Cognitive disorder [Unknown]
  - Gait disturbance [Unknown]
  - Activities of daily living impaired [Unknown]
  - Blood cholesterol increased [Unknown]
  - Blood calcium decreased [Unknown]
  - Somnolence [Unknown]
  - Seasonal allergy [Unknown]
  - Feeling abnormal [Unknown]
